FAERS Safety Report 13194856 (Version 5)
Quarter: 2019Q4

REPORT INFORMATION
  Report Type: Spontaneous
  Country: JP (occurrence: JP)
  Receive Date: 20170207
  Receipt Date: 20191127
  Transmission Date: 20200122
  Serious: Yes (Death, Hospitalization)
  Sender: FDA-Public Use
  Company Number: JP-ACTELION-A-US2017-149598

PATIENT
  Age: 77 Year
  Sex: Male
  Weight: 54.5 kg

DRUGS (28)
  1. DIART [Concomitant]
     Active Substance: AZOSEMIDE
     Indication: CARDIAC FAILURE
     Dosage: UNK
     Dates: start: 20150501
  2. FERROUS SODIUM CITRATE [Concomitant]
     Active Substance: SODIUM FERROUS CITRATE
  3. LOSARTAN POTASSIUM. [Concomitant]
     Active Substance: LOSARTAN POTASSIUM
     Dosage: UNK
     Dates: end: 20160915
  4. ADCIRCA [Concomitant]
     Active Substance: TADALAFIL
     Indication: PULMONARY ARTERIAL HYPERTENSION
     Dosage: UNK
     Dates: start: 20150508
  5. VENTAVIS [Suspect]
     Active Substance: ILOPROST
     Dosage: 5 MCG, 8/D
     Route: 055
     Dates: start: 20160831, end: 20160902
  6. VENTAVIS [Suspect]
     Active Substance: ILOPROST
     Dosage: 2.5 MCG, 8/D
     Route: 055
     Dates: start: 20160903, end: 20160912
  7. VENTAVIS [Suspect]
     Active Substance: ILOPROST
     Dosage: 2.5 MCG, 8/D
     Route: 055
     Dates: start: 20161114, end: 20170125
  8. BERAPROST SODIUM [Suspect]
     Active Substance: BERAPROST SODIUM
     Dosage: 120 MCG, BID
     Route: 048
     Dates: start: 20160405, end: 20160716
  9. BAYASPIRIN [Concomitant]
     Active Substance: ASPIRIN
     Indication: ANGINA PECTORIS
     Dosage: 100 MG, UNK
  10. SPIRONOLACTONE. [Concomitant]
     Active Substance: SPIRONOLACTONE
     Indication: CARDIAC FAILURE
  11. RABEPRAZOLE SODIUM. [Concomitant]
     Active Substance: RABEPRAZOLE SODIUM
     Indication: GASTRIC ULCER
  12. OXYGEN. [Concomitant]
     Active Substance: OXYGEN
  13. BENZBROMARONE [Concomitant]
     Active Substance: BENZBROMARONE
  14. VENTAVIS [Suspect]
     Active Substance: ILOPROST
     Indication: PULMONARY ARTERIAL HYPERTENSION
     Dosage: 5 MCG, 8/D
     Route: 055
     Dates: start: 20160914, end: 20161113
  15. BERAPROST SODIUM [Suspect]
     Active Substance: BERAPROST SODIUM
     Dosage: 120 MCG, TID
     Route: 048
     Dates: start: 20160311, end: 20160404
  16. FEBUXOSTAT. [Concomitant]
     Active Substance: FEBUXOSTAT
  17. CRESTOR [Concomitant]
     Active Substance: ROSUVASTATIN CALCIUM
     Indication: DYSLIPIDAEMIA
  18. NATRIX [Concomitant]
     Active Substance: INDAPAMIDE
  19. VENTAVIS [Suspect]
     Active Substance: ILOPROST
     Dosage: 5 MCG, QID
     Route: 055
     Dates: start: 20160913, end: 20160913
  20. OPSUMIT [Suspect]
     Active Substance: MACITENTAN
     Indication: PULMONARY ARTERIAL HYPERTENSION
     Dosage: 10 MG, QD
     Route: 048
     Dates: start: 20150610, end: 20160216
  21. BERAPROST SODIUM [Suspect]
     Active Substance: BERAPROST SODIUM
     Indication: PULMONARY ARTERIAL HYPERTENSION
     Dosage: 60 MCG, BID
     Route: 048
     Dates: start: 20160304, end: 20160307
  22. DIART [Concomitant]
     Active Substance: AZOSEMIDE
     Indication: RIGHT VENTRICULAR FAILURE
  23. LOPEMIN [Concomitant]
     Indication: PROPHYLAXIS
     Dosage: UNK
     Dates: start: 20161128
  24. ADOAIR [Concomitant]
     Active Substance: FLUTICASONE PROPIONATE\SALMETEROL XINAFOATE
  25. CONIEL [Concomitant]
     Active Substance: BENIDIPINE HYDROCHLORIDE
  26. OPSUMIT [Suspect]
     Active Substance: MACITENTAN
     Dosage: 10 MG, QD
     Route: 048
     Dates: start: 20160226, end: 20170125
  27. BERAPROST SODIUM [Suspect]
     Active Substance: BERAPROST SODIUM
     Dosage: 120 MCG, QD
     Route: 048
     Dates: start: 20160308, end: 20160310
  28. REVATIO [Concomitant]
     Active Substance: SILDENAFIL CITRATE
     Indication: PULMONARY ARTERIAL HYPERTENSION
     Dosage: UNK
     Dates: start: 20161111, end: 20161120

REACTIONS (14)
  - Myalgia [Recovering/Resolving]
  - Condition aggravated [Unknown]
  - Anaemia [Recovered/Resolved]
  - Pulmonary hypertension [Recovering/Resolving]
  - Respiratory failure [Unknown]
  - Right ventricular failure [Fatal]
  - Diarrhoea [Recovering/Resolving]
  - Respiratory arrest [Fatal]
  - Pulseless electrical activity [Fatal]
  - Pericardial effusion [Recovering/Resolving]
  - Pleural effusion [Unknown]
  - Headache [Recovering/Resolving]
  - Oxygen saturation decreased [Unknown]
  - Renal impairment [Not Recovered/Not Resolved]

NARRATIVE: CASE EVENT DATE: 20160902
